FAERS Safety Report 11714320 (Version 1)
Quarter: 2015Q4

REPORT INFORMATION
  Report Type: Spontaneous
  Country: US (occurrence: None)
  Receive Date: 20151106
  Receipt Date: 20151106
  Transmission Date: 20160304
  Serious: No
  Sender: FDA-Public Use
  Company Number: None

PATIENT
  Age: 66 Year
  Sex: Male
  Weight: 106.9 kg

DRUGS (1)
  1. LEVOFLOXACIN. [Suspect]
     Active Substance: LEVOFLOXACIN
     Dosage: MG EVERY DAY PO
     Route: 048
     Dates: start: 20120210, end: 20120213

REACTIONS (1)
  - Rash [None]

NARRATIVE: CASE EVENT DATE: 20120213
